FAERS Safety Report 15170114 (Version 1)
Quarter: 2018Q3

REPORT INFORMATION
  Report Type: Spontaneous
  Country: US (occurrence: US)
  Receive Date: 20180720
  Receipt Date: 20180720
  Transmission Date: 20181010
  Serious: No
  Sender: FDA-Public Use
  Company Number: US-PFIZER INC-2018292078

PATIENT
  Age: 69 Year
  Sex: Male

DRUGS (1)
  1. LIPITOR [Suspect]
     Active Substance: ATORVASTATIN CALCIUM
     Dosage: 20 MG, DAILY

REACTIONS (5)
  - Myalgia [Unknown]
  - Pyrexia [Unknown]
  - Fatigue [Unknown]
  - Dizziness [Unknown]
  - Dyspnoea [Unknown]
